FAERS Safety Report 12282384 (Version 3)
Quarter: 2016Q2

REPORT INFORMATION
  Report Type: Spontaneous
  Country: CN (occurrence: CN)
  Receive Date: 20160419
  Receipt Date: 20160613
  Transmission Date: 20160815
  Serious: Yes (Hospitalization)
  Sender: FDA-Public Use
  Company Number: CN-009507513-1412CHN001885

PATIENT
  Age: 62 Year
  Sex: Female
  Weight: 51 kg

DRUGS (50)
  1. EMEND [Suspect]
     Active Substance: APREPITANT
     Dosage: 80 MG,  DAY 3
     Route: 048
     Dates: start: 20141121, end: 20141121
  2. METOCLOPRAMIDE. [Concomitant]
     Active Substance: METOCLOPRAMIDE
     Indication: PROPHYLAXIS OF NAUSEA AND VOMITING
     Dosage: 2 ML/CC QD
     Route: 030
     Dates: start: 20141119, end: 20141121
  3. ZADAXIN [Concomitant]
     Dosage: 1.6 MG, QD
     Route: 058
     Dates: start: 20141124, end: 20141124
  4. PYRIDOXINE [Concomitant]
     Active Substance: PYRIDOXINE
     Indication: NUTRITIONAL SUPPLEMENTATION
     Dosage: 100 MG, QD
     Route: 041
     Dates: start: 20141121, end: 20141124
  5. POTASSIUM CHLORIDE. [Concomitant]
     Active Substance: POTASSIUM CHLORIDE
     Dosage: 1 G, ONCE
     Route: 041
     Dates: start: 20141128, end: 20141130
  6. DEXTROSE. [Concomitant]
     Active Substance: DEXTROSE
     Dosage: 500ML/CC, ONCE
     Route: 041
     Dates: start: 20141128, end: 20141130
  7. DEXTROSE. [Concomitant]
     Active Substance: DEXTROSE
     Indication: NUTRITIONAL SUPPLEMENTATION
     Dosage: 200 ML/CC, QD
     Route: 041
     Dates: start: 20141127, end: 20141127
  8. DEXAMETHASONE. [Concomitant]
     Active Substance: DEXAMETHASONE
     Indication: PROPHYLAXIS OF NAUSEA AND VOMITING
     Dosage: TOTAL DAILY DOSE:10TAB, FREQUENCY:BID
     Route: 048
     Dates: start: 20141118, end: 20141118
  9. DEXAMETHASONE. [Concomitant]
     Active Substance: DEXAMETHASONE
     Indication: PROPHYLAXIS OF NAUSEA AND VOMITING
     Dosage: TOTAL DAILY DOSE 10 TAB, BID
     Route: 048
     Dates: start: 20141119, end: 20141120
  10. SHEN MAI ZHU SHE YE [Concomitant]
     Indication: PROPHYLAXIS
     Dosage: 50 ML, QD
     Route: 041
     Dates: start: 20141120, end: 20141123
  11. SHEN MAI ZHU SHE YE [Concomitant]
     Dosage: 50 ML/CC, QD
     Route: 041
     Dates: start: 20141125, end: 20141126
  12. DEXTROSE. [Concomitant]
     Active Substance: DEXTROSE
     Dosage: 500ML/CC, ONCE
     Route: 041
     Dates: start: 20141126, end: 20141126
  13. CISPLATIN. [Concomitant]
     Active Substance: CISPLATIN
     Indication: CHEMOTHERAPY
     Dosage: 35 MG, FREQUENCY: UNKNOWN (DOSE 35MG, TREATMENT CYCLE 1/UNK)
     Route: 041
     Dates: start: 20141119, end: 20141121
  14. VITAMIN B12 [Concomitant]
     Active Substance: CYANOCOBALAMIN
     Indication: PROPHYLAXIS
     Dosage: 2 ML/CC ONCE
     Route: 030
     Dates: start: 20141118, end: 20141118
  15. METOCLOPRAMIDE. [Concomitant]
     Active Substance: METOCLOPRAMIDE
     Dosage: 2 ML/CC QD
     Route: 030
     Dates: start: 20141124, end: 20141124
  16. DEXAMETHASONE SODIUM PHOSPHATE. [Concomitant]
     Active Substance: DEXAMETHASONE SODIUM PHOSPHATE
     Dosage: 5 MG, QD
     Route: 041
     Dates: start: 20141127, end: 20141127
  17. ASCORBIC ACID. [Concomitant]
     Active Substance: ASCORBIC ACID
     Dosage: 1 G, QD
     Route: 041
     Dates: start: 20141124, end: 20141124
  18. POTASSIUM CHLORIDE. [Concomitant]
     Active Substance: POTASSIUM CHLORIDE
     Indication: ELECTROLYTE IMBALANCE
     Dosage: 4 G, ONCE
     Route: 041
     Dates: start: 20141127, end: 20141127
  19. POTASSIUM CHLORIDE. [Concomitant]
     Active Substance: POTASSIUM CHLORIDE
     Dosage: 1.5 G, QD
     Route: 041
     Dates: start: 20141128, end: 20141130
  20. INSULIN [Concomitant]
     Active Substance: INSULIN NOS
     Dosage: 15 IU/KG, QD
     Route: 041
     Dates: start: 20141128, end: 20141130
  21. SODIUM CHLORIDE. [Concomitant]
     Active Substance: SODIUM CHLORIDE
     Indication: ELECTROLYTE IMBALANCE
     Dosage: 40 ML/CC, QD
     Route: 041
     Dates: start: 20141128, end: 20141130
  22. ESTAZOLAM. [Concomitant]
     Active Substance: ESTAZOLAM
     Dosage: 2 TABLETS, QN
     Route: 048
     Dates: start: 20141119, end: 20141119
  23. ESTAZOLAM. [Concomitant]
     Active Substance: ESTAZOLAM
     Dosage: 2 TABLETS, QN
     Route: 048
     Dates: start: 20141122, end: 20141125
  24. METOCLOPRAMIDE. [Concomitant]
     Active Substance: METOCLOPRAMIDE
     Dosage: 2 ML/CC QD
     Route: 030
     Dates: start: 20141126, end: 20141127
  25. DIPHENHYDRAMINE HYDROCHLORIDE. [Concomitant]
     Active Substance: DIPHENHYDRAMINE HYDROCHLORIDE
     Dosage: 2 ML/CC, ONCE
     Route: 030
     Dates: start: 20141126, end: 20141127
  26. METOCLOPRAMIDE. [Concomitant]
     Active Substance: METOCLOPRAMIDE
     Indication: PROPHYLAXIS OF NAUSEA AND VOMITING
     Dosage: 5 MG (3 TABLET), TID
     Route: 048
     Dates: start: 20141123, end: 20141124
  27. AMINO ACIDS (UNSPECIFIED) [Concomitant]
     Active Substance: AMINO ACIDS
     Indication: NUTRITIONAL SUPPLEMENTATION
     Dosage: 500 ML/CC, QD
     Route: 041
     Dates: start: 20141126, end: 20141127
  28. DEXTROSE. [Concomitant]
     Active Substance: DEXTROSE
     Indication: SUPPLEMENTATION THERAPY
     Dosage: 1000ML/CC, ONCE
     Route: 041
     Dates: start: 20141127, end: 20141127
  29. SODIUM CHLORIDE. [Concomitant]
     Active Substance: SODIUM CHLORIDE
     Dosage: 40 ML/CC, QD
     Route: 041
     Dates: start: 20141126, end: 20141126
  30. EMEND [Suspect]
     Active Substance: APREPITANT
     Indication: PROPHYLAXIS OF NAUSEA AND VOMITING
     Dosage: 125 MG,  DAY 1
     Route: 048
     Dates: start: 20141119, end: 20141119
  31. ZADAXIN [Concomitant]
     Dosage: 1.6 MG, QD
     Route: 058
     Dates: start: 20141126, end: 20141126
  32. DIPHENHYDRAMINE HYDROCHLORIDE. [Concomitant]
     Active Substance: DIPHENHYDRAMINE HYDROCHLORIDE
     Indication: PROPHYLAXIS OF NAUSEA AND VOMITING
     Dosage: 2 ML/CC, ONCE
     Route: 030
     Dates: start: 20141121, end: 20141121
  33. ASMETON [Concomitant]
     Active Substance: AMINOPHYLLINE\CHLORPHENIRAMINE MALEATE\METHOXYPHENAMINE HYDROCHLORIDE\NOSCAPINE
     Indication: COUGH
     Dosage: UNK, TID
     Route: 048
     Dates: start: 20141124
  34. POTASSIUM CHLORIDE. [Concomitant]
     Active Substance: POTASSIUM CHLORIDE
     Dosage: 3 G, ONCE
     Route: 041
     Dates: start: 20141126, end: 20141126
  35. PANTOPRAZOLE [Concomitant]
     Active Substance: PANTOPRAZOLE SODIUM
     Indication: PROPHYLAXIS
     Dosage: 40 MG, QD
     Route: 041
     Dates: start: 20141122, end: 20141130
  36. INSULIN [Concomitant]
     Active Substance: INSULIN NOS
     Indication: PROPHYLAXIS
     Dosage: 15 IU/KG/H, QD
     Route: 041
     Dates: start: 20141126, end: 20141127
  37. PEMETREXED DISODIUM [Concomitant]
     Active Substance: PEMETREXED DISODIUM
     Indication: CHEMOTHERAPY
     Dosage: DOSE 0.75G, TREATMENT CYCLE 1/UNK
     Route: 041
     Dates: start: 20141119, end: 20141119
  38. HEPARIN SODIUM. [Concomitant]
     Active Substance: HEPARIN SODIUM
     Indication: PROPHYLAXIS
     Dosage: 2 ML/CC ONCE, 12300IU ONCE
     Route: 041
     Dates: start: 20141118, end: 20141118
  39. TROPISETRON HYDROCHLORIDE [Concomitant]
     Active Substance: TROPISETRON HYDROCHLORIDE
     Indication: PROPHYLAXIS OF NAUSEA AND VOMITING
     Dosage: 5 MG, QD
     Route: 042
     Dates: start: 20141119, end: 20141123
  40. DEXAMETHASONE SODIUM PHOSPHATE. [Concomitant]
     Active Substance: DEXAMETHASONE SODIUM PHOSPHATE
     Indication: PROPHYLAXIS OF NAUSEA AND VOMITING
     Dosage: 2.5 MG, QD
     Route: 041
     Dates: start: 20141119, end: 20141121
  41. ZADAXIN [Concomitant]
     Indication: IMMUNISATION
     Dosage: UNK , QD
     Route: 058
     Dates: start: 20141121, end: 20141121
  42. PYRIDOXINE [Concomitant]
     Active Substance: PYRIDOXINE
     Dosage: 200 MG, QD
     Route: 041
     Dates: start: 20141125, end: 20141125
  43. DEXAMETHASONE. [Concomitant]
     Active Substance: DEXAMETHASONE
     Dosage: TOTAL DAILY DOSE 10 TAB, BID
     Route: 048
     Dates: start: 20141122, end: 20141123
  44. ASCORBIC ACID. [Concomitant]
     Active Substance: ASCORBIC ACID
     Indication: NUTRITIONAL SUPPLEMENTATION
     Dosage: 2 G, QD
     Route: 041
     Dates: start: 20141121, end: 20141123
  45. EMEND [Suspect]
     Active Substance: APREPITANT
     Dosage: 80 MG,  DAY 2
     Route: 048
     Dates: start: 20141120, end: 20141120
  46. FOLIC ACID. [Concomitant]
     Active Substance: FOLIC ACID
     Indication: PROPHYLAXIS
     Dosage: 0.4 MG (1 TABLET), QD
     Route: 048
     Dates: start: 20141117
  47. TROPISETRON HYDROCHLORIDE [Concomitant]
     Active Substance: TROPISETRON HYDROCHLORIDE
     Dosage: 5 MG, QD
     Route: 041
     Dates: start: 20141125, end: 20141128
  48. ZADAXIN [Concomitant]
     Dosage: 1.6 MG, QD
     Route: 058
     Dates: start: 20141128, end: 20141130
  49. ASCORBIC ACID. [Concomitant]
     Active Substance: ASCORBIC ACID
     Dosage: 1 G, QD
     Route: 041
     Dates: start: 20141125, end: 20141125
  50. DEXTROSE. [Concomitant]
     Active Substance: DEXTROSE
     Dosage: 100 ML, ONCE
     Route: 041
     Dates: start: 20141126, end: 20141126

REACTIONS (6)
  - Urinary tract infection [Recovered/Resolved]
  - Oral infection [Recovered/Resolved]
  - White blood cell count decreased [Recovered/Resolved]
  - Constipation [Recovered/Resolved]
  - Blood sodium decreased [Recovered/Resolved]
  - Neutrophil count decreased [Recovered/Resolved]

NARRATIVE: CASE EVENT DATE: 20141120
